FAERS Safety Report 19644940 (Version 2)
Quarter: 2021Q3

REPORT INFORMATION
  Report Type: Spontaneous
  Country: US (occurrence: US)
  Receive Date: 20210802
  Receipt Date: 20210827
  Transmission Date: 20211014
  Serious: Yes (Other)
  Sender: FDA-Public Use
  Company Number: US-LUPIN PHARMACEUTICALS INC.-2021-13056

PATIENT
  Sex: Female
  Weight: 72.56 kg

DRUGS (3)
  1. LEVOTHYROXINE SODIUM TABLETS USP, 75 MCG [Suspect]
     Active Substance: LEVOTHYROXINE SODIUM
     Indication: THYROID DISORDER
     Dosage: UNK UNK, QD
     Route: 065
  2. LEVOTHYROXINE SODIUM TABLETS USP, 50 MCG [Suspect]
     Active Substance: LEVOTHYROXINE SODIUM
     Indication: THYROID DISORDER
     Dosage: UNK UNK, QD
     Route: 065
  3. LOSARTAN. [Concomitant]
     Active Substance: LOSARTAN
     Indication: BLOOD PRESSURE MEASUREMENT
     Dosage: UNK UNK, QD
     Route: 065

REACTIONS (4)
  - Fatigue [Unknown]
  - Wrong technique in product usage process [Unknown]
  - Hyperthyroidism [Unknown]
  - Insomnia [Unknown]
